FAERS Safety Report 16015781 (Version 2)
Quarter: 2019Q1

REPORT INFORMATION
  Report Type: Spontaneous
  Country: GB (occurrence: GB)
  Receive Date: 20190228
  Receipt Date: 20190301
  Transmission Date: 20190418
  Serious: Yes (Hospitalization)
  Sender: FDA-Public Use
  Company Number: GB-BIOGEN-2019BI00702596

PATIENT
  Sex: Female

DRUGS (1)
  1. TECFIDERA [Suspect]
     Active Substance: DIMETHYL FUMARATE
     Indication: MULTIPLE SCLEROSIS
     Route: 048

REACTIONS (13)
  - Frustration tolerance decreased [Unknown]
  - Gastroenteritis norovirus [Recovered/Resolved]
  - Anxiety [Unknown]
  - Mental impairment [Unknown]
  - Pain in extremity [Unknown]
  - Anger [Unknown]
  - Drug ineffective [Recovered/Resolved]
  - Multiple sclerosis relapse [Unknown]
  - Nervousness [Unknown]
  - Limb discomfort [Unknown]
  - Dehydration [Unknown]
  - Rash [Unknown]
  - Feeling hot [Unknown]

NARRATIVE: CASE EVENT DATE: 201712
